FAERS Safety Report 19160615 (Version 1)
Quarter: 2021Q2

REPORT INFORMATION
  Report Type: Report from Study
  Country: CA (occurrence: CA)
  Receive Date: 20210421
  Receipt Date: 20210421
  Transmission Date: 20210717
  Serious: Yes (Death, Other)
  Sender: FDA-Public Use
  Company Number: CA-ASTRAZENECA-2021A318707

PATIENT
  Sex: Male

DRUGS (5)
  1. FASENRA [Suspect]
     Active Substance: BENRALIZUMAB
     Indication: ASTHMA
     Dosage: 30.0MG UNKNOWN
     Route: 058
     Dates: start: 20200421, end: 20201201
  2. ALVESCO 2INH [Concomitant]
  3. TRELEGY ELLIPTA 100/62.5/25 MCG 1INH [Concomitant]
  4. VENTOLIN [Concomitant]
     Active Substance: ALBUTEROL SULFATE
     Dosage: 100.0UG AS REQUIRED
  5. SEEBRI BREEZHALER [Concomitant]
     Active Substance: GLYCOPYRROLATE

REACTIONS (3)
  - Lung disorder [Unknown]
  - Death [Fatal]
  - Liver disorder [Unknown]
